FAERS Safety Report 7727283-4 (Version None)
Quarter: 2011Q3

REPORT INFORMATION
  Report Type: 
  Country: None (occurrence: None)
  Receive Date: 20110902
  Receipt Date: 20110901
  Transmission Date: 20111222
  Serious: Yes (Life-Threatening, Hospitalization)
  Sender: FDA-Public Use
  Company Number: DE-BAYER-2011-080314

PATIENT
  Sex: Female

DRUGS (1)
  1. ULTRAVIST 150 [Suspect]
     Indication: COMPUTERISED TOMOGRAM
     Dosage: 80 ML, UNK

REACTIONS (4)
  - UNEVALUABLE EVENT [None]
  - COUGH [None]
  - DYSPNOEA [None]
  - ANAPHYLACTIC REACTION [None]
